FAERS Safety Report 25305291 (Version 1)
Quarter: 2025Q2

REPORT INFORMATION
  Report Type: Spontaneous
  Country: US (occurrence: US)
  Receive Date: 20250513
  Receipt Date: 20250513
  Transmission Date: 20250716
  Serious: Yes (Death, Other)
  Sender: AMGEN
  Company Number: US-AMGEN-USASP2025091255

PATIENT

DRUGS (4)
  1. TARLATAMAB [Suspect]
     Active Substance: TARLATAMAB
     Indication: Small cell lung cancer
     Route: 040
  2. TARLATAMAB [Suspect]
     Active Substance: TARLATAMAB
     Route: 040
  3. TARLATAMAB [Suspect]
     Active Substance: TARLATAMAB
     Dosage: 10 MILLIGRAM, Q2WK
     Route: 040
  4. DEXAMETHASONE [Concomitant]
     Active Substance: DEXAMETHASONE

REACTIONS (10)
  - Death [Fatal]
  - Small cell lung cancer [Unknown]
  - Metastases to central nervous system [Unknown]
  - Immune effector cell-associated neurotoxicity syndrome [Unknown]
  - Cytokine release syndrome [Unknown]
  - Lymphopenia [Unknown]
  - Hypomagnesaemia [Unknown]
  - Therapy partial responder [Unknown]
  - Dysgeusia [Unknown]
  - Fatigue [Unknown]
